FAERS Safety Report 23330958 (Version 1)
Quarter: 2023Q4

REPORT INFORMATION
  Report Type: Spontaneous
  Country: US (occurrence: US)
  Receive Date: 20231222
  Receipt Date: 20231222
  Transmission Date: 20240110
  Serious: Yes (Other)
  Sender: FDA-Public Use
  Company Number: US-TEVA-VS-3135643

PATIENT

DRUGS (6)
  1. COPAXONE [Suspect]
     Active Substance: GLATIRAMER ACETATE
     Indication: Multiple sclerosis
     Route: 065
  2. BACLOFEN [Concomitant]
     Active Substance: BACLOFEN
     Route: 065
  3. GABAPENTIN [Concomitant]
     Active Substance: GABAPENTIN
     Route: 065
  4. OTEZLA [Concomitant]
     Active Substance: APREMILAST
     Route: 065
  5. NAPROXEN [Concomitant]
     Active Substance: NAPROXEN
     Route: 065
  6. DULOXETINE [Concomitant]
     Active Substance: DULOXETINE
     Route: 065

REACTIONS (1)
  - Multiple sclerosis relapse [Unknown]
